FAERS Safety Report 8016874-1 (Version None)
Quarter: 2012Q1

REPORT INFORMATION
  Report Type: 
  Country: None (occurrence: None)
  Receive Date: 20120102
  Receipt Date: 20111219
  Transmission Date: 20120608
  Serious: Yes (Hospitalization, Other)
  Sender: FDA-Public Use
  Company Number: PHFR2011GB05641

PATIENT
  Sex: Male

DRUGS (2)
  1. CLOZARIL [Suspect]
     Dosage: 200 MG AM AND 450 MG PM
  2. CLOZARIL [Suspect]
     Route: 048
     Dates: start: 20080611

REACTIONS (5)
  - LOWER RESPIRATORY TRACT INFECTION [None]
  - CONVULSION [None]
  - WHITE BLOOD CELL COUNT INCREASED [None]
  - NEUTROPHIL COUNT INCREASED [None]
  - CIRCULATORY COLLAPSE [None]
